FAERS Safety Report 18183660 (Version 1)
Quarter: 2020Q3

REPORT INFORMATION
  Report Type: Spontaneous
  Country: US (occurrence: US)
  Receive Date: 20200822
  Receipt Date: 20200822
  Transmission Date: 20201103
  Serious: Yes (Hospitalization)
  Sender: FDA-Public Use
  Company Number: US-ANIPHARMA-2019-US-018821

PATIENT
  Sex: Female
  Weight: 54.43 kg

DRUGS (3)
  1. ATENOLOL. [Concomitant]
     Active Substance: ATENOLOL
     Dosage: AT NIGHT
     Route: 065
  2. ARIMIDEX [Suspect]
     Active Substance: ANASTROZOLE
     Indication: BREAST CANCER
     Dosage: 1 TABLET PER DAY
     Route: 048
     Dates: start: 2014, end: 2018
  3. PRESCRIPTION OMEPRAZOLE [Suspect]
     Active Substance: OMEPRAZOLE
     Dosage: DAILY
     Route: 048

REACTIONS (3)
  - Weight decreased [Unknown]
  - Pain [Not Recovered/Not Resolved]
  - Spinal fracture [Recovered/Resolved]

NARRATIVE: CASE EVENT DATE: 2016
